FAERS Safety Report 7030845-3 (Version None)
Quarter: 2010Q4

REPORT INFORMATION
  Report Type: 
  Country: None (occurrence: None)
  Receive Date: 20101006
  Receipt Date: 20100930
  Transmission Date: 20110411
  Serious: Yes (Death)
  Sender: FDA-Public Use
  Company Number: US-MERCK-1009USA02715

PATIENT
  Age: 63 Year
  Sex: Female

DRUGS (18)
  1. HYZAAR [Suspect]
     Indication: HYPERTENSION
     Route: 048
     Dates: start: 20080101
  2. JANUVIA [Suspect]
     Indication: TYPE 2 DIABETES MELLITUS
     Route: 048
  3. SINGULAIR [Suspect]
     Indication: ASTHMA
     Route: 048
  4. PRANDIN [Concomitant]
     Route: 065
  5. VITAMIN D (UNSPECIFIED) [Concomitant]
     Route: 065
  6. AMBIEN [Concomitant]
     Route: 065
  7. METFORMIN [Concomitant]
     Route: 065
  8. SIMVASTATIN [Concomitant]
     Route: 048
  9. ALLEGRA [Concomitant]
     Route: 065
  10. NORVASC [Concomitant]
     Route: 065
  11. PROVENTIL [Concomitant]
     Route: 065
  12. PATANOL [Concomitant]
     Route: 065
  13. PROTONIX [Concomitant]
     Route: 065
  14. KLONOPIN [Concomitant]
     Route: 065
  15. TOPAMAX [Concomitant]
     Route: 065
  16. CYMBALTA [Concomitant]
     Route: 065
  17. ZOFRAN [Concomitant]
     Route: 065
  18. NASONEX [Concomitant]
     Route: 065

REACTIONS (1)
  - DEATH [None]
